FAERS Safety Report 5464552-5 (Version None)
Quarter: 2007Q3

REPORT INFORMATION
  Report Type: 
  Country: None (occurrence: None)
  Receive Date: 20070921
  Receipt Date: 20070913
  Transmission Date: 20080115
  Serious: Yes (Hospitalization)
  Sender: FDA-Public Use
  Company Number: CA-BOEHRINGER INGELHEIM PHARMACEUTICALS, INC.-2007-CN-00154CN

PATIENT
  Age: 84 Year
  Sex: Male

DRUGS (13)
  1. SPIRIVA [Suspect]
     Indication: CHRONIC OBSTRUCTIVE PULMONARY DISEASE
  2. ATROVENT [Suspect]
     Route: 055
     Dates: end: 20070215
  3. LASIX [Concomitant]
  4. PANTOPRAZOLE SODIUM [Concomitant]
  5. PAXIL [Concomitant]
  6. SEROQUEL [Concomitant]
  7. POTASSIUM CHLORIDE [Concomitant]
  8. ATIVAN [Concomitant]
  9. TYLENOL (CAPLET) [Concomitant]
  10. SALBUTAMOL [Concomitant]
  11. PULMICORT [Concomitant]
  12. PREDNISONE [Concomitant]
  13. SYNTHROID [Concomitant]

REACTIONS (2)
  - CHRONIC OBSTRUCTIVE PULMONARY DISEASE [None]
  - PNEUMONIA [None]
